FAERS Safety Report 8511717-1 (Version None)
Quarter: 2012Q3

REPORT INFORMATION
  Report Type: 
  Country: None (occurrence: None)
  Receive Date: 20120716
  Receipt Date: 20120522
  Transmission Date: 20120928
  Serious: Yes (Death)
  Sender: FDA-Public Use
  Company Number: US-PFIZER INC-US-WYE-H13730210

PATIENT
  Age: 49 Year
  Sex: Female

DRUGS (5)
  1. LAMOTRGINE [Suspect]
     Dosage: UNKNOWN
     Route: 048
     Dates: start: 20080101, end: 20080101
  2. TRAMADOL HCL [Suspect]
     Dosage: UNKNOWN
     Route: 048
     Dates: start: 20080101, end: 20080101
  3. CYCLOBENAZPRINE [Suspect]
     Dosage: UNKNOWN
     Route: 048
     Dates: start: 20080101, end: 20080101
  4. VENLAFAXINE HCL [Suspect]
     Dosage: UNKNOWN
     Route: 048
     Dates: start: 20080101, end: 20080101
  5. HYDROXYZINE PAMOATE [Suspect]
     Dosage: UNKNOWN
     Route: 048
     Dates: start: 20080101, end: 20080101

REACTIONS (1)
  - COMPLETED SUICIDE [None]
